FAERS Safety Report 10266015 (Version 1)
Quarter: 2014Q2

REPORT INFORMATION
  Report Type: Spontaneous
  Country: RU (occurrence: RU)
  Receive Date: 20140627
  Receipt Date: 20140627
  Transmission Date: 20141212
  Serious: Yes (Other)
  Sender: FDA-Public Use
  Company Number: PHHY2014RU076551

PATIENT
  Age: 60 Year
  Sex: Female

DRUGS (3)
  1. BYOL [Suspect]
     Indication: TACHYCARDIA
     Dosage: 2.5 MG IN MORNING, 1.25 MG IN EVENING
     Route: 048
     Dates: start: 201312
  2. BYOL [Suspect]
     Dosage: 1.25 MG IN MORNING, 1.25 MG IN EVENING
     Route: 048
  3. BYOL [Suspect]
     Dosage: 2.5 MG IN MORNING, 1.25 MG IN EVENING
     Route: 048

REACTIONS (1)
  - Angina pectoris [Recovering/Resolving]
